FAERS Safety Report 5008652-2 (Version None)
Quarter: 2006Q2

REPORT INFORMATION
  Report Type: 
  Country: None (occurrence: None)
  Receive Date: 20060523
  Receipt Date: 20060518
  Transmission Date: 20061013
  Serious: Yes (Other)
  Sender: FDA-Public Use
  Company Number: 2006/01371

PATIENT
  Age: 8 Year
  Sex: Male

DRUGS (6)
  1. LAMICTAL [Suspect]
     Indication: DRUG USE FOR UNKNOWN INDICATION
     Dosage: 25MG PER DAY
     Route: 048
  2. FLUTICASONE PROPIONATE [Concomitant]
     Dosage: 250MCG TWICE PER DAY
     Route: 055
  3. CLOBAZAM [Concomitant]
     Dosage: 20MG PER DAY
     Route: 048
  4. NYSTATIN [Concomitant]
     Route: 061
  5. RISPERIDONE [Concomitant]
     Dosage: .25ML FOUR TIMES PER DAY
     Route: 048
  6. VALPROIC ACID [Concomitant]
     Dosage: 250MG THREE TIMES PER DAY
     Route: 048

REACTIONS (8)
  - ALANINE AMINOTRANSFERASE INCREASED [None]
  - ASPARTATE AMINOTRANSFERASE INCREASED [None]
  - BLOOD LACTATE DEHYDROGENASE INCREASED [None]
  - HYPOPROTEINAEMIA [None]
  - PULMONARY OEDEMA [None]
  - PYREXIA [None]
  - RASH [None]
  - THROMBOCYTOPENIA [None]
